FAERS Safety Report 25969629 (Version 1)
Quarter: 2025Q4

REPORT INFORMATION
  Report Type: Spontaneous
  Country: US (occurrence: US)
  Receive Date: 20251028
  Receipt Date: 20251028
  Transmission Date: 20260117
  Serious: No
  Sender: VERTEX
  Company Number: US-VERTEX PHARMACEUTICALS-2025-017547

PATIENT
  Age: 70 Year
  Sex: Male

DRUGS (1)
  1. JOURNAVX [Suspect]
     Active Substance: SUZETRIGINE
     Indication: Pain
     Dosage: INITIAL LOADING DOSE
     Route: 048

REACTIONS (4)
  - Muscle spasms [Unknown]
  - Somnolence [Unknown]
  - Fatigue [Unknown]
  - Feeling abnormal [Unknown]
